FAERS Safety Report 17887554 (Version 1)
Quarter: 2020Q2

REPORT INFORMATION
  Report Type: Spontaneous
  Country: ES (occurrence: ES)
  Receive Date: 20200612
  Receipt Date: 20200612
  Transmission Date: 20200714
  Serious: Yes (Death)
  Sender: FDA-Public Use
  Company Number: ES-ROCHE-2616496

PATIENT
  Age: 26 Year
  Sex: Female

DRUGS (7)
  1. ENOXAPARINA [Suspect]
     Active Substance: ENOXAPARIN
     Indication: PRODUCT USED FOR UNKNOWN INDICATION
     Dosage: 40MG DIA
     Route: 058
     Dates: start: 20200327, end: 20200401
  2. HIDROXICLOROQUINA SULFATO [Suspect]
     Active Substance: HYDROXYCHLOROQUINE SULFATE
     Indication: COVID-19 PNEUMONIA
     Dosage: 400 MG DIA
     Route: 048
     Dates: start: 20200323, end: 20200401
  3. AZITROMICINA [Suspect]
     Active Substance: AZITHROMYCIN DIHYDRATE
     Indication: COVID-19 PNEUMONIA
     Dosage: 500 MG DIA
     Route: 048
     Dates: start: 20200323, end: 20200324
  4. TOCILIZUMAB. [Suspect]
     Active Substance: TOCILIZUMAB
     Indication: SEVERE ACUTE RESPIRATORY SYNDROME
     Dosage: 600 MG
     Route: 042
     Dates: start: 20200329, end: 20200329
  5. DEXAMETASONA [DEXAMETHASONE] [Suspect]
     Active Substance: DEXAMETHASONE
     Indication: PRODUCT USED FOR UNKNOWN INDICATION
     Dosage: 20 MG DIA
     Route: 042
     Dates: start: 20200328, end: 20200401
  6. DEXKETOPROFENO [DEXKETOPROFEN] [Suspect]
     Active Substance: DEXKETOPROFEN
     Indication: PRODUCT USED FOR UNKNOWN INDICATION
     Dosage: 25 MG CADA 8 HORAS
     Route: 042
     Dates: start: 20200327, end: 20200401
  7. TOCILIZUMAB. [Suspect]
     Active Substance: TOCILIZUMAB
     Indication: COVID-19 PNEUMONIA

REACTIONS (1)
  - Coagulopathy [Fatal]

NARRATIVE: CASE EVENT DATE: 20200331
